FAERS Safety Report 7227308-9 (Version None)
Quarter: 2011Q1

REPORT INFORMATION
  Report Type: 
  Country: None (occurrence: None)
  Receive Date: 20110114
  Receipt Date: 20110104
  Transmission Date: 20110831
  Serious: Yes (Other)
  Sender: FDA-Public Use
  Company Number: B0691980A

PATIENT
  Sex: Male
  Weight: 1.3 kg

DRUGS (1)
  1. CLAVENTIN [Suspect]
     Indication: RESPIRATORY TRACT INFECTION
     Route: 042
     Dates: start: 20101217, end: 20101217

REACTIONS (4)
  - MEDICATION ERROR [None]
  - OVERDOSE [None]
  - INCORRECT DOSE ADMINISTERED [None]
  - NO ADVERSE EVENT [None]
